FAERS Safety Report 4309697-8 (Version None)
Quarter: 2004Q1

REPORT INFORMATION
  Report Type: 
  Country: None (occurrence: None)
  Receive Date: 20040301
  Receipt Date: 20040218
  Transmission Date: 20041129
  Serious: No
  Sender: FDA-Public Use
  Company Number: 04H-163-0250651-00

PATIENT
  Age: 16 Year
  Sex: Male
  Weight: 65.318 kg

DRUGS (5)
  1. VANCOMYCIN HYDROCHLORIDE [Suspect]
     Indication: INFECTION
     Dosage: 1 GM, EVERY 12 HOURS, INTRAVENOUS
     Route: 042
     Dates: start: 20040119, end: 20040216
  2. VANCOMYCIN HYDROCHLORIDE [Suspect]
  3. VANCOMYCIN HYDROCHLORIDE [Suspect]
  4. VANCOMYCIN HYDROCHLORIDE [Suspect]
  5. SODIUM CHLORIDE INJ [Concomitant]

REACTIONS (1)
  - NEUTROPENIA [None]
